FAERS Safety Report 12631968 (Version 2)
Quarter: 2016Q3

REPORT INFORMATION
  Report Type: Spontaneous
  Country: US (occurrence: US)
  Receive Date: 20160808
  Receipt Date: 20160808
  Transmission Date: 20161109
  Serious: No
  Sender: FDA-Public Use
  Company Number: US-BEH-2016061527

PATIENT
  Sex: Female
  Weight: 65 kg

DRUGS (21)
  1. HIZENTRA [Suspect]
     Active Substance: HUMAN IMMUNOGLOBULIN G
     Indication: OTITIS MEDIA CHRONIC
     Route: 058
  2. HIZENTRA [Suspect]
     Active Substance: HUMAN IMMUNOGLOBULIN G
     Indication: CONGENITAL HYPOGAMMAGLOBULINAEMIA
     Route: 058
  3. ALBUTEROL. [Concomitant]
     Active Substance: ALBUTEROL
  4. IBUPROFEN. [Concomitant]
     Active Substance: IBUPROFEN
  5. PROTONIX [Concomitant]
     Active Substance: PANTOPRAZOLE SODIUM
  6. DIPHENHYDRAMINE. [Concomitant]
     Active Substance: DIPHENHYDRAMINE
  7. AMMONIUM LACTATE. [Concomitant]
     Active Substance: AMMONIUM LACTATE
  8. LEVOCARNITINE. [Concomitant]
     Active Substance: LEVOCARNITINE
  9. GUAIFENESIN. [Concomitant]
     Active Substance: GUAIFENESIN
  10. OFLOXACIN. [Concomitant]
     Active Substance: OFLOXACIN
  11. AZITHROMYCIN ANHYDROUS. [Concomitant]
     Active Substance: AZITHROMYCIN ANHYDROUS
  12. EPIPEN [Concomitant]
     Active Substance: EPINEPHRINE
  13. TRETINOIN. [Concomitant]
     Active Substance: TRETINOIN
  14. LIDOCAINE. [Concomitant]
     Active Substance: LIDOCAINE
  15. CLINDAMYCIN [Concomitant]
     Active Substance: CLINDAMYCIN\CLINDAMYCIN PHOSPHATE
  16. AUGMENTIN [Concomitant]
     Active Substance: AMOXICILLIN\CLAVULANATE POTASSIUM
  17. METFORMIN [Concomitant]
     Active Substance: METFORMIN HYDROCHLORIDE
  18. NAPROXEN. [Concomitant]
     Active Substance: NAPROXEN
  19. TRANEXAMIC [Concomitant]
  20. NASACORT [Concomitant]
     Active Substance: TRIAMCINOLONE ACETONIDE
  21. SULFAMETHOXAZOLE-TMP SS [Concomitant]

REACTIONS (1)
  - Sinusitis [Unknown]
